FAERS Safety Report 7867615-X (Version None)
Quarter: 2011Q4

REPORT INFORMATION
  Report Type: 
  Country: None (occurrence: None)
  Receive Date: 20111028
  Receipt Date: 20111024
  Transmission Date: 20120403
  Serious: Yes (Death)
  Sender: FDA-Public Use
  Company Number: PHHY2011DE19708

PATIENT
  Sex: Male

DRUGS (1)
  1. ONBREZ [Suspect]
     Dosage: 1 DF, QD
     Dates: start: 20110201

REACTIONS (3)
  - HEPATIC NEOPLASM MALIGNANT [None]
  - COUGH [None]
  - DISEASE PROGRESSION [None]
